FAERS Safety Report 9014505 (Version 1)
Quarter: 2013Q1

REPORT INFORMATION
  Report Type: Spontaneous
  Country: US (occurrence: US)
  Receive Date: 20130115
  Receipt Date: 20130115
  Transmission Date: 20140127
  Serious: Yes (Other)
  Sender: FDA-Public Use
  Company Number: CHPA2013US000638

PATIENT
  Age: 59 Year
  Sex: Male

DRUGS (2)
  1. LAMISIL [Suspect]
     Indication: ONYCHOMYCOSIS
     Dosage: UNK, ONCE PER DAY
     Route: 061
  2. LAMISIL [Suspect]
     Indication: ONYCHOMYCOSIS
     Dosage: ONE TABLET DAILY, AS NEEDED
     Route: 048

REACTIONS (3)
  - Renal failure chronic [Not Recovered/Not Resolved]
  - Off label use [Unknown]
  - Incorrect drug administration duration [Unknown]
